FAERS Safety Report 7763756-6 (Version None)
Quarter: 2011Q3

REPORT INFORMATION
  Report Type: 
  Country: None (occurrence: None)
  Receive Date: 20110919
  Receipt Date: 20110905
  Transmission Date: 20111222
  Serious: Yes (Other)
  Sender: FDA-Public Use
  Company Number: B0746537A

PATIENT
  Age: 36 Year
  Sex: Male

DRUGS (3)
  1. LAMIVUDINE [Suspect]
     Indication: HIV INFECTION
     Dosage: 150 MG / TWICE PER DAY
  2. NEVIRAPINE [Suspect]
     Dosage: 30 MG / TWICE PER DAY
  3. ZIDOVUDINE [Suspect]
     Indication: HIV INFECTION
     Dosage: 300 MG / TWICE A DAY

REACTIONS (3)
  - IMMUNE RECONSTITUTION SYNDROME [None]
  - INTESTINAL OBSTRUCTION [None]
  - ASCITES [None]
